FAERS Safety Report 12061159 (Version 1)
Quarter: 2016Q1

REPORT INFORMATION
  Report Type: Spontaneous
  Country: JP (occurrence: JP)
  Receive Date: 20160210
  Receipt Date: 20160210
  Transmission Date: 20160526
  Serious: Yes (Hospitalization)
  Sender: FDA-Public Use
  Company Number: PHBS1996JP05566

PATIENT
  Age: 60 Year
  Sex: Female

DRUGS (9)
  1. DASEN [Concomitant]
     Route: 065
     Dates: start: 19960514, end: 19960528
  2. UNASYN [Concomitant]
     Active Substance: AMPICILLIN SODIUM\SULBACTAM SODIUM
     Route: 065
     Dates: start: 19960521, end: 19960524
  3. UNASYN [Concomitant]
     Active Substance: AMPICILLIN SODIUM\SULBACTAM SODIUM
     Route: 065
     Dates: start: 19960526, end: 19960528
  4. CELTECT [Concomitant]
     Active Substance: OXATOMIDE
     Route: 065
     Dates: start: 19960424, end: 19960528
  5. NIFLAN [Concomitant]
     Route: 065
     Dates: start: 19960514, end: 19960528
  6. VOLTAREN [Suspect]
     Active Substance: DICLOFENAC SODIUM
     Route: 054
     Dates: start: 19960521, end: 19960530
  7. SELBEX [Concomitant]
     Active Substance: TEPRENONE
     Route: 065
     Dates: start: 19960514, end: 19960528
  8. PANSPORIN [Concomitant]
     Active Substance: CEFOTIAM HYDROCHLORIDE
     Route: 065
     Dates: start: 19960524, end: 19960528
  9. EPOCELIN [Concomitant]
     Route: 065
     Dates: start: 19960529, end: 19960604

REACTIONS (5)
  - Hepatic function abnormal [Recovered/Resolved]
  - Interstitial lung disease [Recovered/Resolved]
  - Pleural effusion [Unknown]
  - Liver disorder [Recovered/Resolved]
  - Lung infiltration [Unknown]

NARRATIVE: CASE EVENT DATE: 19960524
